FAERS Safety Report 18560823 (Version 7)
Quarter: 2022Q1

REPORT INFORMATION
  Report Type: Report from Study
  Country: US (occurrence: US)
  Receive Date: 20201130
  Receipt Date: 20220331
  Transmission Date: 20220423
  Serious: Yes (Other)
  Sender: FDA-Public Use
  Company Number: US-TAKEDA-2020TUS053801

PATIENT
  Age: 0 Year
  Sex: Male

DRUGS (13)
  1. ADVATE [Suspect]
     Active Substance: ANTIHEMOPHILIC FACTOR, HUMAN RECOMBINANT
     Indication: Product used for unknown indication
     Dosage: 500 INTERNATIONAL UNIT
     Route: 042
  2. ADVATE [Suspect]
     Active Substance: ANTIHEMOPHILIC FACTOR, HUMAN RECOMBINANT
     Indication: Product used for unknown indication
     Dosage: 500 INTERNATIONAL UNIT
     Route: 042
  3. ADVATE [Suspect]
     Active Substance: ANTIHEMOPHILIC FACTOR, HUMAN RECOMBINANT
     Indication: Product used for unknown indication
     Dosage: 500 INTERNATIONAL UNIT
     Route: 042
  4. ADVATE [Suspect]
     Active Substance: ANTIHEMOPHILIC FACTOR, HUMAN RECOMBINANT
     Dosage: 561 INTERNATIONAL UNIT, PRN
     Route: 042
  5. ADVATE [Suspect]
     Active Substance: ANTIHEMOPHILIC FACTOR, HUMAN RECOMBINANT
     Dosage: 561 INTERNATIONAL UNIT, PRN
     Route: 042
  6. ADVATE [Suspect]
     Active Substance: ANTIHEMOPHILIC FACTOR, HUMAN RECOMBINANT
     Dosage: 561 INTERNATIONAL UNIT, PRN
     Route: 042
  7. ADVATE [Suspect]
     Active Substance: ANTIHEMOPHILIC FACTOR, HUMAN RECOMBINANT
     Dosage: 600 MILLIGRAM
     Route: 042
  8. ADVATE [Suspect]
     Active Substance: ANTIHEMOPHILIC FACTOR, HUMAN RECOMBINANT
     Dosage: 600 MILLIGRAM
     Route: 042
  9. ADVATE [Suspect]
     Active Substance: ANTIHEMOPHILIC FACTOR, HUMAN RECOMBINANT
     Dosage: 600 MILLIGRAM
     Route: 042
  10. ADVATE [Suspect]
     Active Substance: ANTIHEMOPHILIC FACTOR, HUMAN RECOMBINANT
     Dosage: 600 INTERNATIONAL UNIT
     Route: 042
  11. ADVATE [Suspect]
     Active Substance: ANTIHEMOPHILIC FACTOR, HUMAN RECOMBINANT
     Dosage: 600 INTERNATIONAL UNIT
     Route: 042
  12. ADVATE [Suspect]
     Active Substance: ANTIHEMOPHILIC FACTOR, HUMAN RECOMBINANT
     Dosage: 600 INTERNATIONAL UNIT
     Route: 042
  13. HEMLIBRA [Suspect]
     Active Substance: EMICIZUMAB-KXWH
     Indication: Product used for unknown indication
     Dosage: 36 MILLIGRAM
     Route: 065

REACTIONS (13)
  - Contusion [Recovered/Resolved]
  - Mouth haemorrhage [Unknown]
  - Haemorrhage [Recovered/Resolved]
  - Haematoma [Unknown]
  - Head injury [Recovered/Resolved]
  - Fall [Recovered/Resolved]
  - Lip injury [Recovered/Resolved]
  - Mouth injury [Recovered/Resolved]
  - Musculoskeletal stiffness [Unknown]
  - Muscle rigidity [Unknown]
  - Infusion related reaction [Unknown]
  - Respiratory tract infection [Unknown]
  - Ear infection [Unknown]

NARRATIVE: CASE EVENT DATE: 20201123
